FAERS Safety Report 8420973-X (Version None)
Quarter: 2012Q2

REPORT INFORMATION
  Report Type: 
  Country: None (occurrence: None)
  Receive Date: 20120608
  Receipt Date: 20120601
  Transmission Date: 20120825
  Serious: Yes (Hospitalization, Other)
  Sender: FDA-Public Use
  Company Number: KR-ELI_LILLY_AND_COMPANY-KR201206000426

PATIENT
  Age: 70 Year
  Sex: Female

DRUGS (3)
  1. CHEMOTHERAPEUTICS [Concomitant]
  2. HUMALOG MIX 75/25 [Suspect]
     Indication: TYPE 2 DIABETES MELLITUS
     Dosage: 10 IU, BID
     Route: 058
     Dates: start: 20120501
  3. CORTICOSTEROID NOS [Concomitant]

REACTIONS (7)
  - SHOCK [None]
  - SPEECH DISORDER [None]
  - GENERAL PHYSICAL HEALTH DETERIORATION [None]
  - OEDEMA PERIPHERAL [None]
  - CELLULITIS [None]
  - SEPSIS [None]
  - BLOOD GLUCOSE INCREASED [None]
